FAERS Safety Report 5443127-8 (Version None)
Quarter: 2007Q3

REPORT INFORMATION
  Report Type: 
  Country: None (occurrence: None)
  Receive Date: 20070905
  Receipt Date: 20070827
  Transmission Date: 20080115
  Serious: Yes (Hospitalization, Other)
  Sender: FDA-Public Use
  Company Number: US-KINGPHARMUSA00001-K200701092

PATIENT

DRUGS (5)
  1. ALTACE [Suspect]
     Route: 048
  2. CORDARON /00133102/ [Suspect]
     Route: 048
     Dates: end: 20070427
  3. CORDARON /00133102/ [Suspect]
     Dates: start: 20070101, end: 20070710
  4. STRESAM  /00940201/ [Suspect]
     Route: 048
  5. TANAKAN  /01003103/ [Concomitant]

REACTIONS (9)
  - ASTHENIA [None]
  - CHEST X-RAY ABNORMAL [None]
  - COUGH [None]
  - DYSPNOEA [None]
  - HYPOXIA [None]
  - LOWER RESPIRATORY TRACT INFLAMMATION [None]
  - LUNG DISORDER [None]
  - PNEUMONITIS [None]
  - PYREXIA [None]
